FAERS Safety Report 5344291-1 (Version None)
Quarter: 2007Q2

REPORT INFORMATION
  Report Type: 
  Country: None (occurrence: None)
  Receive Date: 20070604
  Receipt Date: 20070523
  Transmission Date: 20071010
  Serious: Yes (Hospitalization, Disabling, Other)
  Sender: FDA-Public Use
  Company Number: US-ELI_LILLY_AND_COMPANY-US200704000263

PATIENT
  Age: 7 Year
  Sex: Female

DRUGS (1)
  1. STRATTERA [Suspect]
     Indication: ATTENTION DEFICIT/HYPERACTIVITY DISORDER
     Dosage: 40 MG, 2/D
     Route: 048
     Dates: start: 20060101, end: 20070301

REACTIONS (3)
  - HAEMORRHAGIC STROKE [None]
  - HEMIPLEGIA [None]
  - PRESCRIBED OVERDOSE [None]
